FAERS Safety Report 19980897 (Version 1)
Quarter: 2021Q4

REPORT INFORMATION
  Report Type: Spontaneous
  Country: US (occurrence: US)
  Receive Date: 20211021
  Receipt Date: 20211021
  Transmission Date: 20220303
  Serious: Yes (Hospitalization, Other)
  Sender: FDA-Public Use
  Company Number: US-TARO-2021TAR01049

PATIENT

DRUGS (7)
  1. LAMOTRIGINE [Suspect]
     Active Substance: LAMOTRIGINE
     Indication: Cerebral disorder
     Dosage: SMALL DOSE
     Route: 048
     Dates: start: 20210326
  2. LAMOTRIGINE [Suspect]
     Active Substance: LAMOTRIGINE
     Dosage: 100 MG, AT ONE POINT TOOK THE 100 MG
     Route: 048
  3. LAMOTRIGINE [Suspect]
     Active Substance: LAMOTRIGINE
     Dosage: 75 MILLIGRAM, BID, 75 MG AT BREAKFAST AND 75 MG AT DINNER
     Route: 048
  4. ATENOLOL [Concomitant]
     Active Substance: ATENOLOL
     Indication: Product used for unknown indication
     Dosage: 50 MG, IN THE MORNING
     Route: 065
     Dates: start: 20200501
  5. ATENOLOL [Concomitant]
     Active Substance: ATENOLOL
     Dosage: 25 MG AT DINNER TIME
     Route: 065
     Dates: start: 20200501
  6. ATORVASTATIN [Concomitant]
     Active Substance: ATORVASTATIN
     Indication: Product used for unknown indication
     Dosage: 20 MG, QD
     Route: 065
     Dates: start: 20200501
  7. Clopitegrel [Concomitant]
     Indication: Product used for unknown indication
     Dosage: 75 MG, QD
     Route: 065
     Dates: start: 20200501

REACTIONS (10)
  - Asthenia [Not Recovered/Not Resolved]
  - Vertigo [Not Recovered/Not Resolved]
  - Dizziness [Not Recovered/Not Resolved]
  - Neuropathy peripheral [Not Recovered/Not Resolved]
  - Carpal tunnel syndrome [Not Recovered/Not Resolved]
  - Bursitis [Not Recovered/Not Resolved]
  - Decreased appetite [Unknown]
  - Feeling abnormal [Unknown]
  - Flushing [Unknown]
  - Nausea [Unknown]

NARRATIVE: CASE EVENT DATE: 20210401
